FAERS Safety Report 18382012 (Version 1)
Quarter: 2020Q4

REPORT INFORMATION
  Report Type: Spontaneous
  Country: US (occurrence: US)
  Receive Date: 20201014
  Receipt Date: 20201014
  Transmission Date: 20210114
  Serious: Yes (Life-Threatening, Other)
  Sender: FDA-Public Use
  Company Number: US-PFIZER INC-2020384634

PATIENT

DRUGS (1)
  1. DEXTRAN [Suspect]
     Active Substance: DEXTRAN
     Dosage: UNK

REACTIONS (4)
  - Pulmonary arterial pressure increased [Unknown]
  - Hypotension [Unknown]
  - Anaphylactic reaction [Unknown]
  - Oxygen saturation decreased [Unknown]
